FAERS Safety Report 9877375 (Version 2)
Quarter: 2014Q1

REPORT INFORMATION
  Report Type: Spontaneous
  Country: JP (occurrence: JP)
  Receive Date: 20140206
  Receipt Date: 20140212
  Transmission Date: 20141002
  Serious: Yes (Other)
  Sender: FDA-Public Use
  Company Number: JP-ASTELLAS-2014JP000932

PATIENT
  Age: 46 Year
  Sex: Female

DRUGS (7)
  1. PROGRAF [Suspect]
     Indication: MYASTHENIA GRAVIS
     Dosage: 3 MG, UNKNOWN/D
     Route: 048
  2. PROGRAF [Suspect]
     Indication: COLITIS ULCERATIVE
     Dosage: UNK
     Route: 048
  3. PROGRAF [Suspect]
     Dosage: 6 MG, UNKNOWN/D
     Route: 048
  4. PROGRAF [Suspect]
     Dosage: 8 MG, UNKNOWN/D
     Route: 048
  5. PROGRAF [Suspect]
     Dosage: 13 MG, UNKNOWN/D
     Route: 048
     Dates: start: 20140129
  6. CORTICOSTEROID NOS [Concomitant]
     Indication: COLITIS ULCERATIVE
     Route: 065
  7. IMURAN                             /00001501/ [Concomitant]
     Indication: COLITIS ULCERATIVE
     Route: 048

REACTIONS (1)
  - Colitis ulcerative [Unknown]
